FAERS Safety Report 8819312 (Version 1)
Quarter: 2012Q4

REPORT INFORMATION
  Report Type: 
  Country: CO (occurrence: CO)
  Receive Date: 20121001
  Receipt Date: 20121001
  Transmission Date: 20130627
  Serious: Yes (Other)
  Sender: FDA-Public Use
  Company Number: CO-JNJFOC-20120910052

PATIENT
  Sex: Male

DRUGS (2)
  1. REMICADE [Suspect]
     Indication: PSORIASIS
     Route: 042
  2. REMICADE [Suspect]
     Indication: PSORIASIS
     Route: 042
     Dates: start: 20120910

REACTIONS (5)
  - Hypertension [Unknown]
  - Tachycardia [Unknown]
  - Infusion related reaction [Unknown]
  - Dyspnoea [Unknown]
  - Hyperhidrosis [Unknown]
